FAERS Safety Report 9536989 (Version 1)
Quarter: 2013Q3

REPORT INFORMATION
  Report Type: Spontaneous
  Country: US (occurrence: None)
  Receive Date: 20130918
  Receipt Date: 20130918
  Transmission Date: 20140515
  Serious: Yes (Other)
  Sender: FDA-Public Use
  Company Number: None

PATIENT
  Age: 63 Year
  Sex: Male
  Weight: 76.66 kg

DRUGS (4)
  1. VISIPAQUE 270MG /ML GE HEALTHCARE [Suspect]
     Indication: SCAN WITH CONTRAST
     Dates: start: 20130910, end: 20130910
  2. AMLODIPINE, VALSARTAN [Concomitant]
  3. LOSARTAN, [Concomitant]
  4. FLOMAX [Concomitant]

REACTIONS (2)
  - Nausea [None]
  - Chills [None]
